FAERS Safety Report 18823209 (Version 1)
Quarter: 2021Q1

REPORT INFORMATION
  Report Type: Spontaneous
  Country: US (occurrence: US)
  Receive Date: 20210201
  Receipt Date: 20210201
  Transmission Date: 20210419
  Serious: No
  Sender: FDA-Public Use
  Company Number: US-ABBVIE-20K-163-3219455-00

PATIENT
  Age: 57 Year
  Sex: Male
  Weight: 71.67 kg

DRUGS (2)
  1. INFLECTRA [Suspect]
     Active Substance: INFLIXIMAB-DYYB
     Indication: CHRONIC DISEASE
     Route: 065
     Dates: start: 20191030
  2. HUMIRA [Suspect]
     Active Substance: ADALIMUMAB
     Indication: CROHN^S DISEASE
     Route: 058

REACTIONS (3)
  - Fatigue [Unknown]
  - Crohn^s disease [Unknown]
  - Rash [Unknown]

NARRATIVE: CASE EVENT DATE: 201909
